FAERS Safety Report 4725525-0 (Version None)
Quarter: 2005Q3

REPORT INFORMATION
  Report Type: 
  Country: None (occurrence: None)
  Receive Date: 20050722
  Receipt Date: 20050722
  Transmission Date: 20060218
  Serious: Yes (Hospitalization)
  Sender: FDA-Public Use
  Company Number: None

PATIENT
  Age: 48 Year
  Sex: Female

DRUGS (1)
  1. PENICILLIN [Suspect]
     Indication: TOOTH EXTRACTION

REACTIONS (5)
  - CIRCUMORAL OEDEMA [None]
  - EYE SWELLING [None]
  - GENERALISED ERYTHEMA [None]
  - RASH MORBILLIFORM [None]
  - RASH PRURITIC [None]
